FAERS Safety Report 19238841 (Version 1)
Quarter: 2021Q2

REPORT INFORMATION
  Report Type: Spontaneous
  Country: DE (occurrence: DE)
  Receive Date: 20210510
  Receipt Date: 20210510
  Transmission Date: 20210717
  Serious: Yes (Other)
  Sender: FDA-Public Use
  Company Number: NVSC2021DE094935

PATIENT
  Age: 36 Year
  Sex: Female
  Weight: 105 kg

DRUGS (1)
  1. OLMESARTAN ? 1 A PHARMA 20 MG FILMTABLETTEN [Suspect]
     Active Substance: OLMESARTAN MEDOXOMIL
     Indication: HYPERTENSION
     Dosage: 10 UNK
     Route: 048
     Dates: start: 201902

REACTIONS (3)
  - Rash [Not Recovered/Not Resolved]
  - Oedema mouth [Not Recovered/Not Resolved]
  - Laryngotracheal oedema [Not Recovered/Not Resolved]

NARRATIVE: CASE EVENT DATE: 20200320
